FAERS Safety Report 12398471 (Version 1)
Quarter: 2016Q2

REPORT INFORMATION
  Report Type: Spontaneous
  Country: DZ (occurrence: DZ)
  Receive Date: 20160524
  Receipt Date: 20160524
  Transmission Date: 20160815
  Serious: Yes (Hospitalization)
  Sender: FDA-Public Use
  Company Number: DZ-ABBVIE-16K-003-1630589-00

PATIENT
  Age: 35 Year
  Sex: Female
  Weight: 42 kg

DRUGS (2)
  1. HUMIRA [Suspect]
     Active Substance: ADALIMUMAB
     Dosage: 1 DOSE
     Route: 058
     Dates: start: 20160328, end: 20160328
  2. HUMIRA [Suspect]
     Active Substance: ADALIMUMAB
     Indication: CROHN^S DISEASE
     Dosage: INDUCTION DOSE
     Route: 058
     Dates: start: 20160314, end: 20160314

REACTIONS (4)
  - Productive cough [Recovering/Resolving]
  - Dyspnoea [Recovering/Resolving]
  - Chest X-ray abnormal [Unknown]
  - Pyrexia [Recovering/Resolving]

NARRATIVE: CASE EVENT DATE: 2016
